FAERS Safety Report 7409645-8 (Version None)
Quarter: 2011Q2

REPORT INFORMATION
  Report Type: 
  Country: None (occurrence: None)
  Receive Date: 20110412
  Receipt Date: 20110331
  Transmission Date: 20111010
  Serious: Yes (Congenital Anomaly)
  Sender: FDA-Public Use
  Company Number: GB-JNJFOC-20110401519

PATIENT

DRUGS (6)
  1. DIHYDROCODEINE BITARTRATE INJ [Concomitant]
     Route: 065
  2. LAMOTRIGINE [Concomitant]
     Route: 065
  3. BUDESONIDE [Concomitant]
     Route: 065
  4. TERBUTALINE [Concomitant]
     Route: 065
  5. TOPIRAMATE [Suspect]
     Indication: DRUG EXPOSURE DURING PREGNANCY
     Route: 064
  6. FOLIC ACID [Concomitant]
     Route: 065

REACTIONS (1)
  - POLYDACTYLY [None]
